FAERS Safety Report 12832921 (Version 1)
Quarter: 2016Q4

REPORT INFORMATION
  Report Type: Spontaneous
  Country: JP (occurrence: JP)
  Receive Date: 20161010
  Receipt Date: 20161010
  Transmission Date: 20170207
  Serious: Yes (Other)
  Sender: FDA-Public Use
  Company Number: JP-PSKUSFDA-2016-JP-0258

PATIENT
  Sex: Female

DRUGS (4)
  1. LETROZOLE. [Suspect]
     Active Substance: LETROZOLE
     Indication: HORMONE THERAPY
     Dosage: UNKNOWN
  2. EXEMESTANE. [Suspect]
     Active Substance: EXEMESTANE
     Indication: HORMONE THERAPY
     Dosage: UNKNOWN
  3. TOREMIFENE (UNKNOWN) [Suspect]
     Active Substance: TOREMIFENE CITRATE
     Indication: BREAST CANCER METASTATIC
     Dosage: UNKNOWN
  4. TAMOXIFEN [Suspect]
     Active Substance: TAMOXIFEN
     Indication: HORMONE THERAPY

REACTIONS (2)
  - Drug ineffective [None]
  - Breast cancer metastatic [None]
